FAERS Safety Report 7797609-4 (Version None)
Quarter: 2011Q3

REPORT INFORMATION
  Report Type: 
  Country: None (occurrence: None)
  Receive Date: 20110927
  Receipt Date: 20110920
  Transmission Date: 20111222
  Serious: Yes (Hospitalization, Other)
  Sender: FDA-Public Use
  Company Number: 2011028871

PATIENT
  Age: 53 Year
  Sex: Female
  Weight: 83.4619 kg

DRUGS (30)
  1. HIZENTRA [Suspect]
  2. HIZENTRA [Suspect]
  3. VICODEN (VICODIN) [Concomitant]
  4. PREDNISONE TAB [Concomitant]
  5. HIZENTRA [Suspect]
  6. LORATADINE [Concomitant]
  7. LIDODERM [Concomitant]
  8. BACTROBAN [Concomitant]
  9. HIZENTRA [Suspect]
  10. HIZENTRA [Suspect]
  11. FLORINEF [Concomitant]
  12. HIZENTRA [Suspect]
  13. PROBIOTIC (LACTOBACILLUS ACIDOPHILUS) [Concomitant]
  14. ZOFRAN [Concomitant]
  15. CLONAZEPAM [Concomitant]
  16. LEXAPRO [Concomitant]
  17. OXYGEN (OXYGEN) [Concomitant]
  18. LOTEMAX [Concomitant]
  19. ESTRING [Concomitant]
  20. RESTASIS [Concomitant]
  21. HIZENTRA [Suspect]
  22. SYNTHROID [Concomitant]
  23. VITAMIN D [Concomitant]
  24. VIVELLE- DOST (ESTRADIOL) [Concomitant]
  25. HIZENTRA [Suspect]
     Indication: IMMUNODEFICIENCY COMMON VARIABLE
     Dosage: SEE IMAGE
     Route: 058
     Dates: start: 20101001
  26. HIZENTRA [Suspect]
     Indication: IMMUNODEFICIENCY COMMON VARIABLE
     Dosage: SEE IMAGE
     Route: 058
     Dates: start: 20110903, end: 20110903
  27. HIZENTRA [Suspect]
     Indication: IMMUNODEFICIENCY COMMON VARIABLE
     Dosage: SEE IMAGE
     Route: 058
     Dates: start: 20101218
  28. HIZENTRA [Suspect]
  29. OXYCONTIN [Concomitant]
  30. TYLENOL W/ CODEINE NO. 3 [Concomitant]

REACTIONS (7)
  - SKIN LESION [None]
  - IMPAIRED HEALING [None]
  - DEVICE RELATED INFECTION [None]
  - BLOOD IMMUNOGLOBULIN G INCREASED [None]
  - INTERSTITIAL LUNG DISEASE [None]
  - INFLUENZA LIKE ILLNESS [None]
  - CANDIDIASIS [None]
